FAERS Safety Report 5963270-4 (Version None)
Quarter: 2008Q4

REPORT INFORMATION
  Report Type: 
  Country: None (occurrence: None)
  Receive Date: 20081120
  Receipt Date: 20081120
  Transmission Date: 20090506
  Serious: No
  Sender: FDA-Public Use
  Company Number: None

PATIENT
  Age: 61 Year
  Sex: Male

DRUGS (1)
  1. PREGABALIN [Suspect]
     Indication: PAIN
     Dosage: 150 MG TID PO
     Route: 048
     Dates: start: 20080808, end: 20080909

REACTIONS (1)
  - OEDEMA [None]
